FAERS Safety Report 7139164-8 (Version None)
Quarter: 2010Q4

REPORT INFORMATION
  Report Type: 
  Country: None (occurrence: None)
  Receive Date: 20101206
  Receipt Date: 20101201
  Transmission Date: 20110411
  Serious: Yes (Other)
  Sender: FDA-Public Use
  Company Number: PHHY2010SI81831

PATIENT
  Sex: Male
  Weight: 72 kg

DRUGS (7)
  1. ZOLEDRONATE T29581+ [Suspect]
     Dosage: 4MG/5ML/28DAYS
     Dates: start: 20081216
  2. THALIDOMIDE [Concomitant]
  3. MEDROL [Concomitant]
  4. ALKERAN [Concomitant]
  5. DEXAMETHASONE [Concomitant]
  6. MARIVARIN [Concomitant]
  7. ZALDIAR [Concomitant]

REACTIONS (2)
  - DEEP VEIN THROMBOSIS [None]
  - HAEMOGLOBIN DECREASED [None]
